FAERS Safety Report 4634596-1 (Version None)
Quarter: 2005Q2

REPORT INFORMATION
  Report Type: 
  Country: None (occurrence: None)
  Receive Date: 20050413
  Receipt Date: 20030619
  Transmission Date: 20051028
  Serious: Yes (Death, Hospitalization, Other)
  Sender: FDA-Public Use
  Company Number: 031-0981-M0200076

PATIENT
  Age: 54 Year
  Sex: Female
  Weight: 56 kg

DRUGS (6)
  1. ATORVASTATIN CALCIUM [Suspect]
     Indication: CEREBROVASCULAR DISORDER
     Dosage: 80 MG (80 MG, 1 IN 1 D), ORAL
     Route: 048
     Dates: start: 19990420, end: 20020507
  2. CARBASALATE CALCIUM                    (CARBASALATE CALCIUM) [Concomitant]
  3. RANATIDINE                (RANITIDINE) [Concomitant]
  4. DICLOFENAC SODIUM [Concomitant]
  5. CHLORHEXIDINE               (CHLORHEXIDINE) [Concomitant]
  6. NITRAZEPAM [Concomitant]

REACTIONS (16)
  - ACTIVITIES OF DAILY LIVING IMPAIRED [None]
  - AMYOTROPHIC LATERAL SCLEROSIS [None]
  - ASTHENIA [None]
  - BRONCHOPNEUMONIA [None]
  - CEREBRAL ATROPHY [None]
  - COGNITIVE DISORDER [None]
  - DYSARTHRIA [None]
  - DYSPHAGIA [None]
  - FALL [None]
  - GASTROINTESTINAL ULCER [None]
  - HELICOBACTER INFECTION [None]
  - PAIN [None]
  - POSITIVE ROMBERGISM [None]
  - POSITRON EMISSION TOMOGRAM ABNORMAL [None]
  - PYREXIA [None]
  - SPEECH DISORDER [None]
